FAERS Safety Report 17875155 (Version 2)
Quarter: 2020Q2

REPORT INFORMATION
  Report Type: Report from Study
  Country: MX (occurrence: MX)
  Receive Date: 20200609
  Receipt Date: 20200617
  Transmission Date: 20200714
  Serious: Yes (Death, Other)
  Sender: FDA-Public Use
  Company Number: MX-UCBSA-2020022451

PATIENT
  Age: 73 Year
  Sex: Female
  Weight: 45 kg

DRUGS (6)
  1. LEVODOPA/CARBIDOPA [Concomitant]
     Active Substance: CARBIDOPA\LEVODOPA
     Indication: PARKINSON^S DISEASE
  2. DIPHENIDOL [DIFENIDOL] [Concomitant]
     Indication: VERTIGO
  3. ROTIGOTINE [Suspect]
     Active Substance: ROTIGOTINE
     Indication: PARKINSON^S DISEASE
     Dosage: 4 MILLIGRAM, ONCE DAILY (QD)
     Route: 062
     Dates: start: 201901, end: 202002
  4. DIPHENIDOL [DIFENIDOL] [Concomitant]
     Indication: BALANCE DISORDER
  5. LOSARTAN. [Concomitant]
     Active Substance: LOSARTAN
     Indication: BLOOD PRESSURE INCREASED
  6. PAROXETINE. [Concomitant]
     Active Substance: PAROXETINE
     Indication: CARDIOVASCULAR DISORDER

REACTIONS (10)
  - Ulcer [Unknown]
  - Parkinson^s disease [Fatal]
  - Vertigo [Recovered/Resolved]
  - Fall [Unknown]
  - Clavicle fracture [Unknown]
  - Drug ineffective [Unknown]
  - Hypertension [Fatal]
  - Balance disorder [Recovered/Resolved]
  - Weight fluctuation [Unknown]
  - Anaemia [Unknown]

NARRATIVE: CASE EVENT DATE: 201901
